FAERS Safety Report 17501544 (Version 1)
Quarter: 2020Q1

REPORT INFORMATION
  Report Type: Spontaneous
  Country: US (occurrence: US)
  Receive Date: 20200305
  Receipt Date: 20200305
  Transmission Date: 20200409
  Serious: Yes (Other)
  Sender: FDA-Public Use
  Company Number: US-PFIZER INC-2020097196

PATIENT
  Age: 69 Year
  Sex: Female

DRUGS (2)
  1. XELJANZ XR [Suspect]
     Active Substance: TOFACITINIB CITRATE
     Dosage: 11 MG, 1X/DAY
     Route: 048
     Dates: start: 20200210
  2. XELJANZ XR [Suspect]
     Active Substance: TOFACITINIB CITRATE
     Indication: PSORIATIC ARTHROPATHY
     Dosage: 11 MG, 1X/DAY
     Route: 048
     Dates: start: 201807, end: 20200106

REACTIONS (9)
  - Upper respiratory tract infection [Unknown]
  - Sinus congestion [Unknown]
  - Cough [Unknown]
  - Nausea [Unknown]
  - Bronchitis [Unknown]
  - Chronic obstructive pulmonary disease [Unknown]
  - Diarrhoea [Unknown]
  - Oropharyngeal pain [Unknown]
  - Emphysema [Unknown]

NARRATIVE: CASE EVENT DATE: 201912
